FAERS Safety Report 24449157 (Version 1)
Quarter: 2024Q4

REPORT INFORMATION
  Report Type: Spontaneous
  Country: JP (occurrence: JP)
  Receive Date: 20241017
  Receipt Date: 20241017
  Transmission Date: 20250115
  Serious: Yes (Hospitalization, Other)
  Sender: BOEHRINGER INGELHEIM
  Company Number: JP-NBI-2024-BI-057396

PATIENT
  Age: 78 Year
  Sex: Male

DRUGS (2)
  1. IDARUCIZUMAB [Suspect]
     Active Substance: IDARUCIZUMAB
     Indication: Procoagulant therapy
     Dosage: DAILY DOSE: 5 GRAM(S)
     Route: 042
  2. PROTAMINE AND PREPARATIONS [Concomitant]
     Indication: Product used for unknown indication

REACTIONS (1)
  - Pericardial effusion [Unknown]
